FAERS Safety Report 4931387-9 (Version None)
Quarter: 2006Q1

REPORT INFORMATION
  Report Type: 
  Country: None (occurrence: None)
  Receive Date: 20060303
  Receipt Date: 20051007
  Transmission Date: 20060701
  Serious: Yes (Other)
  Sender: FDA-Public Use
  Company Number: PHNR2005AU01484

PATIENT
  Age: 60 Year
  Sex: Female

DRUGS (8)
  1. ZOMETA [Suspect]
     Indication: METASTASES TO BONE
     Dosage: 4 MG, ONCE/SINGLE
     Dates: start: 20050629, end: 20050629
  2. ZOMETA [Suspect]
     Dosage: 4 MG, ONCE/SINGLE
     Dates: start: 20050824, end: 20050824
  3. ZOMETA [Suspect]
     Dosage: 4 MG, ONCE/SINGLE
     Dates: start: 20050921, end: 20050921
  4. AROMASIN [Concomitant]
     Indication: BREAST CANCER
  5. MELOXICAM [Concomitant]
     Indication: OSTEOARTHRITIS
  6. ATORVASTATIN CALCIUM [Concomitant]
     Indication: HYPERCHOLESTEROLAEMIA
     Dates: start: 20050601
  7. CALCIUM W/VITAMIN D NOS [Concomitant]
  8. AMG 162 [Suspect]
     Indication: METASTASES TO BONE
     Dosage: 1 IN 4 WEEKS
     Route: 058
     Dates: start: 20050112, end: 20050601

REACTIONS (11)
  - ARTHRALGIA [None]
  - CARDIOMEGALY [None]
  - CHILLS [None]
  - COUGH [None]
  - DILATATION ATRIAL [None]
  - HYPERTENSION [None]
  - INFLUENZA LIKE ILLNESS [None]
  - MALIGNANT NEOPLASM PROGRESSION [None]
  - PERICARDIAL EFFUSION [None]
  - PYREXIA [None]
  - RHINORRHOEA [None]
